FAERS Safety Report 23281377 (Version 2)
Quarter: 2023Q4

REPORT INFORMATION
  Report Type: Spontaneous
  Country: TW (occurrence: TW)
  Receive Date: 20231211
  Receipt Date: 20231228
  Transmission Date: 20240110
  Serious: Yes (Death, Hospitalization, Other)
  Sender: FDA-Public Use
  Company Number: TW-ASTELLAS-2023US036705

PATIENT
  Age: 69 Year
  Sex: Male

DRUGS (2)
  1. XOSPATA [Suspect]
     Active Substance: GILTERITINIB
     Indication: Acute myeloid leukaemia
     Dosage: 80MG QD ORALLY
     Route: 048
     Dates: start: 202310
  2. XOSPATA [Suspect]
     Active Substance: GILTERITINIB
     Dosage: 80MG QD ORALLY (80MG QD VIA NG TUBE)
     Route: 050
     Dates: start: 20231128

REACTIONS (4)
  - Acute myeloid leukaemia [Fatal]
  - Septic shock [Fatal]
  - Off label use [Unknown]
  - Wrong technique in product usage process [Unknown]

NARRATIVE: CASE EVENT DATE: 20231101
